APPROVED DRUG PRODUCT: VEREGEN
Active Ingredient: SINECATECHINS
Strength: 15%
Dosage Form/Route: OINTMENT;TOPICAL
Application: N021902 | Product #001
Applicant: ANI PHARMACEUTICALS INC
Approved: Oct 31, 2006 | RLD: Yes | RS: Yes | Type: RX

PATENTS:
Patent 7858662 | Expires: Oct 2, 2026